FAERS Safety Report 19471234 (Version 2)
Quarter: 2021Q3

REPORT INFORMATION
  Report Type: Spontaneous
  Country: HU (occurrence: HU)
  Receive Date: 20210628
  Receipt Date: 20210709
  Transmission Date: 20211014
  Serious: Yes (Other)
  Sender: FDA-Public Use
  Company Number: HU-BAUSCH-BL-2021-021915

PATIENT
  Age: 37 Year
  Sex: Male

DRUGS (10)
  1. DICLOFENAC [Suspect]
     Active Substance: DICLOFENAC
     Indication: PRODUCT USED FOR UNKNOWN INDICATION
     Route: 065
     Dates: start: 201903, end: 201906
  2. ADALIMUMAB [Suspect]
     Active Substance: ADALIMUMAB
     Route: 065
     Dates: start: 202104, end: 202105
  3. METHOTREXATE. [Concomitant]
     Active Substance: METHOTREXATE
     Indication: PSORIASIS
     Route: 065
     Dates: start: 20030301
  4. FOLIC ACID. [Concomitant]
     Active Substance: FOLIC ACID
     Indication: PRODUCT USED FOR UNKNOWN INDICATION
     Route: 065
     Dates: start: 20030301
  5. NAPROXEN. [Concomitant]
     Active Substance: NAPROXEN
     Indication: PRODUCT USED FOR UNKNOWN INDICATION
     Dosage: 2X (TWICE)
     Route: 065
     Dates: start: 201906
  6. ADALIMUMAB [Suspect]
     Active Substance: ADALIMUMAB
     Indication: PRODUCT USED FOR UNKNOWN INDICATION
     Route: 065
     Dates: start: 20200313, end: 202103
  7. AMLODIPINE [Concomitant]
     Active Substance: AMLODIPINE BESYLATE
     Indication: BLOOD PRESSURE ABNORMAL
     Dosage: IN THE EVENING
     Dates: start: 20190801
  8. IBUPROFEN. [Concomitant]
     Active Substance: IBUPROFEN
     Indication: PRODUCT USED FOR UNKNOWN INDICATION
     Dosage: 1X (ONCE)
     Route: 065
     Dates: start: 201910, end: 201912
  9. SECUKINUMAB. [Suspect]
     Active Substance: SECUKINUMAB
     Indication: PRODUCT USED FOR UNKNOWN INDICATION
     Route: 065
  10. PERINDOPRIL [Concomitant]
     Active Substance: PERINDOPRIL
     Indication: BLOOD PRESSURE ABNORMAL
     Route: 065

REACTIONS (24)
  - Arthropathy [Unknown]
  - Product dose omission issue [Unknown]
  - Joint effusion [Recovered/Resolved]
  - Respiratory disorder [Unknown]
  - Drug ineffective [Unknown]
  - Polyarthritis [Recovered/Resolved]
  - Ligament calcification [Unknown]
  - Spinal disorder [Unknown]
  - Pyrexia [Unknown]
  - Musculoskeletal disorder [Unknown]
  - Spinal pain [Unknown]
  - Enthesopathy [Recovered/Resolved]
  - Hypertension [Unknown]
  - Sacroiliitis [Unknown]
  - Back disorder [Unknown]
  - Hepatomegaly [Unknown]
  - Localised oedema [Unknown]
  - Liver function test increased [Recovered/Resolved]
  - Blood uric acid increased [Unknown]
  - Hepatitis B core antibody positive [Unknown]
  - C-reactive protein increased [Unknown]
  - Joint swelling [Recovered/Resolved]
  - C-reactive protein increased [Recovered/Resolved]
  - Psoriasis [Recovered/Resolved]

NARRATIVE: CASE EVENT DATE: 201908
